FAERS Safety Report 12352940 (Version 1)
Quarter: 2016Q2

REPORT INFORMATION
  Report Type: Spontaneous
  Country: US (occurrence: US)
  Receive Date: 20160510
  Receipt Date: 20160510
  Transmission Date: 20160815
  Serious: Yes (Death)
  Sender: FDA-Public Use
  Company Number: US-ASTRAZENECA-2016SE48223

PATIENT
  Sex: Female

DRUGS (1)
  1. BYETTA [Suspect]
     Active Substance: EXENATIDE
     Route: 065
     Dates: start: 20111026, end: 20140405

REACTIONS (3)
  - Pancreatic carcinoma [Fatal]
  - Lung neoplasm malignant [Fatal]
  - Hepatic cancer [Fatal]

NARRATIVE: CASE EVENT DATE: 20140428
